FAERS Safety Report 5430872-3 (Version None)
Quarter: 2007Q3

REPORT INFORMATION
  Report Type: 
  Country: None (occurrence: None)
  Receive Date: 20070830
  Receipt Date: 20070102
  Transmission Date: 20080115
  Serious: No
  Sender: FDA-Public Use
  Company Number: A0633251A

PATIENT
  Sex: Female

DRUGS (3)
  1. WELLBUTRIN XL [Suspect]
     Indication: DEPRESSION
     Dosage: 150MG PER DAY
     Route: 048
     Dates: start: 20050101, end: 20061231
  2. LUNESTA [Concomitant]
  3. MELOXICAM [Concomitant]

REACTIONS (3)
  - FEELING ABNORMAL [None]
  - HYPERHIDROSIS [None]
  - INSOMNIA [None]
